FAERS Safety Report 11418138 (Version 1)
Quarter: 2015Q3

REPORT INFORMATION
  Report Type: Spontaneous
  Country: US (occurrence: US)
  Receive Date: 20150825
  Receipt Date: 20150825
  Transmission Date: 20151125
  Serious: Yes (Hospitalization, Other)
  Sender: FDA-Public Use
  Company Number: US-AMGEN-USASP2015085671

PATIENT
  Age: 69 Year
  Sex: Male

DRUGS (1)
  1. EPOGEN [Suspect]
     Active Substance: ERYTHROPOIETIN
     Indication: ANAEMIA
     Dosage: 10000 UNIT, ONCE EVERY 2 WEEKS
     Route: 065
     Dates: start: 201504

REACTIONS (4)
  - Appendicectomy [Unknown]
  - Herpes zoster [Unknown]
  - Injection site pruritus [Not Recovered/Not Resolved]
  - Catheter management [Unknown]

NARRATIVE: CASE EVENT DATE: 20150703
